FAERS Safety Report 10425677 (Version 1)
Quarter: 2014Q3

REPORT INFORMATION
  Report Type: Spontaneous
  Country: US (occurrence: US)
  Receive Date: 20140903
  Receipt Date: 20140903
  Transmission Date: 20150326
  Serious: Yes (Death, Life-Threatening, Hospitalization)
  Sender: FDA-Public Use
  Company Number: 2014SP005046

PATIENT
  Sex: Male
  Weight: 84 kg

DRUGS (2)
  1. DAUNORUBICIN [Suspect]
     Active Substance: DAUNORUBICIN
     Indication: ACUTE MYELOID LEUKAEMIA
     Dates: start: 20131204, end: 20131206
  2. CYTARABINE. [Suspect]
     Active Substance: CYTARABINE
     Indication: ACUTE MYELOID LEUKAEMIA
     Dates: start: 20131204, end: 20131210

REACTIONS (5)
  - Acinetobacter infection [Unknown]
  - Device related infection [Fatal]
  - Septic shock [Unknown]
  - Febrile neutropenia [Unknown]
  - Multi-organ failure [Unknown]

NARRATIVE: CASE EVENT DATE: 20131207
